FAERS Safety Report 4382016-7 (Version None)
Quarter: 2004Q2

REPORT INFORMATION
  Report Type: 
  Country: None (occurrence: None)
  Receive Date: 20040615
  Receipt Date: 20040603
  Transmission Date: 20050107
  Serious: Yes (Other)
  Sender: FDA-Public Use
  Company Number: HQWYE225603JUN04

PATIENT
  Age: 31 Year
  Sex: Female

DRUGS (7)
  1. EFFEXOR [Suspect]
     Indication: DEPRESSION
     Dosage: 75 MG (FREQUENCY UNSPECIFIED)
     Dates: start: 20021101, end: 20021201
  2. EFFEXOR [Suspect]
     Indication: DEPRESSION
     Dosage: 150 MG (FREQUENCY UNSPECIFIED)
     Dates: start: 20021201, end: 20030201
  3. EFFEXOR [Suspect]
     Dosage: 300 MG (FREQUENCY UNSPECIFIED)
     Dates: start: 20030201, end: 20030101
  4. EFFEXOR [Suspect]
     Dosage: 450 MG (FREQUENCY UNSPECIFIED)
     Dates: start: 20030101, end: 20030101
  5. EFFEXOR [Suspect]
     Dosage: 37.5 MG 1X PER 1 DAY
     Dates: start: 20030101, end: 20030901
  6. PAROXETINE HCL [Suspect]
     Dates: end: 20031101
  7. UNSPECIFIED THYROID MEDICATION (UNSPECIFIED THYROID MEDICATION), UNKNO [Concomitant]

REACTIONS (13)
  - ASTHENIA [None]
  - CONDITION AGGRAVATED [None]
  - DRUG INEFFECTIVE [None]
  - DYSPNOEA [None]
  - EYE IRRITATION [None]
  - FEELING ABNORMAL [None]
  - FEELING OF DESPAIR [None]
  - HOMICIDAL IDEATION [None]
  - RELATIONSHIP BREAKDOWN [None]
  - SOMNOLENCE [None]
  - SUICIDAL IDEATION [None]
  - SUICIDE ATTEMPT [None]
  - THROAT IRRITATION [None]
